FAERS Safety Report 18923669 (Version 2)
Quarter: 2021Q1

REPORT INFORMATION
  Report Type: Spontaneous
  Country: CN (occurrence: CN)
  Receive Date: 20210222
  Receipt Date: 20210304
  Transmission Date: 20210420
  Serious: Yes (Death)
  Sender: FDA-Public Use
  Company Number: CN-PFIZER INC-2021154288

PATIENT
  Age: 67 Year
  Sex: Male
  Weight: 63 kg

DRUGS (4)
  1. PHARMORUBICIN [Suspect]
     Active Substance: EPIRUBICIN
     Indication: CHEMOTHERAPY
     Dosage: 60 MG, 1X/DAY
     Dates: start: 20210128, end: 20210128
  2. SODIUM CHLORIDE. [Concomitant]
     Active Substance: SODIUM CHLORIDE
     Indication: VEHICLE SOLUTION USE
     Dosage: 100 ML, 1X/DAY
     Dates: start: 20210128, end: 20210128
  3. SINTILIMAB. [Suspect]
     Active Substance: SINTILIMAB
     Indication: THERAPEUTIC PROCEDURE
     Dosage: 200 MG, 1X/DAY
     Dates: start: 20210128, end: 20210128
  4. PACLITAXEL ALBUMIN [Suspect]
     Active Substance: PACLITAXEL
     Indication: CHEMOTHERAPY
     Dosage: 200 MG, 1X/DAY
     Dates: start: 20210128, end: 20210128

REACTIONS (1)
  - Full blood count decreased [Fatal]

NARRATIVE: CASE EVENT DATE: 20210202
